FAERS Safety Report 7120244-8 (Version None)
Quarter: 2010Q4

REPORT INFORMATION
  Report Type: 
  Country: None (occurrence: None)
  Receive Date: 20101123
  Receipt Date: 20101117
  Transmission Date: 20110411
  Serious: Yes (Hospitalization)
  Sender: FDA-Public Use
  Company Number: CG-MERCK-1011USA02252

PATIENT
  Age: 30 Year
  Sex: Female

DRUGS (1)
  1. STROMECTOL [Suspect]
     Indication: ONCHOCERCIASIS
     Route: 065
     Dates: start: 20100924

REACTIONS (2)
  - DEPRESSED LEVEL OF CONSCIOUSNESS [None]
  - VERTIGO [None]
